FAERS Safety Report 9677097 (Version 2)
Quarter: 2013Q4

REPORT INFORMATION
  Report Type: Spontaneous
  Country: JP (occurrence: JP)
  Receive Date: 20131108
  Receipt Date: 20131108
  Transmission Date: 20140711
  Serious: Yes (Hospitalization)
  Sender: FDA-Public Use
  Company Number: JP-009507513-1310JPN003446

PATIENT
  Age: 34 Year
  Sex: Female
  Weight: 63 kg

DRUGS (10)
  1. MARVELON 28 [Suspect]
     Indication: MENSTRUATION IRREGULAR
     Dosage: 1 DF, QD
     Route: 048
     Dates: start: 20130731, end: 20130828
  2. ASACOL [Concomitant]
     Indication: COLITIS ULCERATIVE
     Route: 048
  3. DOGMATYL [Concomitant]
     Indication: DEPRESSION
     Route: 048
  4. AMOXAN [Concomitant]
     Indication: DEPRESSION
     Route: 048
  5. SEDIEL [Concomitant]
     Indication: DEPRESSION
     Route: 048
  6. ROHYPNOL [Concomitant]
     Indication: DEPRESSION
     Route: 048
  7. U PAN [Concomitant]
     Indication: DEPRESSION
     Route: 048
  8. RESLIN TABLETS 25 [Concomitant]
     Indication: DEPRESSION
     Route: 048
  9. RISPERDAL [Concomitant]
     Indication: DEPRESSION
     Route: 048
  10. ABILIFY [Concomitant]
     Indication: DEPRESSION
     Route: 048

REACTIONS (3)
  - Takayasu^s arteritis [Recovered/Resolved]
  - Jugular vein thrombosis [Unknown]
  - Venous thrombosis [Unknown]
